FAERS Safety Report 10042134 (Version 1)
Quarter: 2014Q1

REPORT INFORMATION
  Report Type: Spontaneous
  Country: FR (occurrence: FR)
  Receive Date: 20140327
  Receipt Date: 20140327
  Transmission Date: 20141002
  Serious: Yes (Life-Threatening, Other)
  Sender: FDA-Public Use
  Company Number: FR-BRISTOL-MYERS SQUIBB COMPANY-20547394

PATIENT
  Age: 82 Year
  Sex: Female

DRUGS (10)
  1. COUMADINE [Suspect]
     Indication: ATRIAL FIBRILLATION
     Dosage: LAST DOSE ON 04-MAR-2014
     Route: 048
     Dates: start: 20140225
  2. KARDEGIC [Concomitant]
  3. ALPRAZOLAM [Concomitant]
  4. LAROXYL [Concomitant]
  5. ONGLYZA TABS [Concomitant]
  6. LYRICA [Concomitant]
  7. CORTANCYL [Concomitant]
  8. INSULATARD [Concomitant]
  9. CACIT D3 [Concomitant]
  10. REPAGLINIDE [Concomitant]

REACTIONS (5)
  - Intra-abdominal haematoma [Recovered/Resolved]
  - Haemorrhage [Recovered/Resolved]
  - Septic shock [Unknown]
  - Pneumonia [Unknown]
  - Anaemia [Recovered/Resolved]
